FAERS Safety Report 4778018-9 (Version None)
Quarter: 2005Q3

REPORT INFORMATION
  Report Type: 
  Country: None (occurrence: None)
  Receive Date: 20050921
  Receipt Date: 20050913
  Transmission Date: 20060218
  Serious: Yes (Death)
  Sender: FDA-Public Use
  Company Number: 2005JP001730

PATIENT
  Age: 61 Year
  Sex: Female

DRUGS (3)
  1. FUNGUARD (MICAFUNGIN INJECTION) INJECTION [Suspect]
     Indication: FUNGAL INFECTION
     Dosage: 100.00 D, IV DRIP
     Route: 041
     Dates: start: 20050830, end: 20050101
  2. MEROPENEM (MEROPENEM) INJECTION [Concomitant]
  3. PREDNISOLONE [Concomitant]

REACTIONS (6)
  - ANAPHYLACTIC SHOCK [None]
  - ASPERGILLOSIS [None]
  - BACTERIAL ANTIGEN POSITIVE [None]
  - CANDIDA SEROLOGY POSITIVE [None]
  - SEPTIC SHOCK [None]
  - THERAPY NON-RESPONDER [None]
